FAERS Safety Report 8821096 (Version 1)
Quarter: 2012Q4

REPORT INFORMATION
  Report Type: 
  Country: US (occurrence: US)
  Receive Date: 20121002
  Receipt Date: 20121002
  Transmission Date: 20130627
  Serious: Yes (Congenital Anomaly)
  Sender: FDA-Public Use
  Company Number: US-GLAXOSMITHKLINE-A0994862A

PATIENT
  Age: 0 Year
  Sex: Male

DRUGS (5)
  1. PAXIL [Suspect]
     Indication: PRODUCT USED FOR UNKNOWN INDICATION
     Route: 064
  2. PREDNISONE [Concomitant]
     Route: 064
  3. FOLIC ACID [Concomitant]
     Route: 064
  4. MULTIVITAMIN [Concomitant]
     Route: 064
  5. VICODIN [Concomitant]
     Route: 064

REACTIONS (3)
  - Cleft palate [Unknown]
  - Cleft uvula [Unknown]
  - Foetal exposure during pregnancy [Unknown]
